FAERS Safety Report 6518894-2 (Version None)
Quarter: 2009Q4

REPORT INFORMATION
  Report Type: 
  Country: None (occurrence: None)
  Receive Date: 20091218
  Receipt Date: 20091207
  Transmission Date: 20100525
  Serious: Yes (Hospitalization, Other)
  Sender: FDA-Public Use
  Company Number: 2009AP004891

PATIENT
  Age: 76 Year
  Sex: Female

DRUGS (9)
  1. ALENDRONATE SODIUM [Suspect]
     Indication: PROPHYLAXIS
     Dosage: 10 MG;PO;QD ; 70 MG;QW
     Route: 048
     Dates: start: 19990801
  2. PREDNISONE [Suspect]
     Indication: RHEUMATOID ARTHRITIS
     Dosage: 10 MG;QD ; 5 MG ;QD
     Dates: start: 19960301, end: 19990101
  3. PREDNISONE [Suspect]
     Indication: RHEUMATOID ARTHRITIS
     Dosage: 10 MG;QD ; 5 MG ;QD
     Dates: start: 19990101
  4. OMEPRAZOLE [Suspect]
     Indication: RHEUMATOID ARTHRITIS
     Dates: start: 19850101
  5. METHOTREXATE [Suspect]
     Indication: RHEUMATOID ARTHRITIS
     Dosage: 15 MG;QW
     Dates: start: 19990101
  6. DICLOFENAC SODIUM [Concomitant]
  7. GOLD (GOLD) [Concomitant]
  8. PENICILLAMINE [Concomitant]
  9. INFLIXIMAB (INFLIXIMAB) [Concomitant]

REACTIONS (10)
  - BONE FORMATION DECREASED [None]
  - CALLUS FORMATION DELAYED [None]
  - DYSSTASIA [None]
  - FEMUR FRACTURE [None]
  - FRACTURE DELAYED UNION [None]
  - GAIT DISTURBANCE [None]
  - NO THERAPEUTIC RESPONSE [None]
  - PATHOLOGICAL FRACTURE [None]
  - RESORPTION BONE INCREASED [None]
  - STRESS FRACTURE [None]
